FAERS Safety Report 8343625-3 (Version None)
Quarter: 2012Q2

REPORT INFORMATION
  Report Type: 
  Country: None (occurrence: None)
  Receive Date: 20120508
  Receipt Date: 20100719
  Transmission Date: 20120825
  Serious: No
  Sender: FDA-Public Use
  Company Number: US-TEVA-2010003396

PATIENT
  Sex: Female
  Weight: 51.302 kg

DRUGS (2)
  1. TREANDA [Suspect]
     Indication: NON-HODGKIN'S LYMPHOMA
     Route: 042
     Dates: start: 20100408, end: 20100506
  2. RITUXAN [Suspect]

REACTIONS (2)
  - RASH MACULAR [None]
  - RASH PRURITIC [None]
